FAERS Safety Report 24783295 (Version 8)
Quarter: 2025Q1

REPORT INFORMATION
  Report Type: Spontaneous
  Country: US (occurrence: US)
  Receive Date: 20241227
  Receipt Date: 20250320
  Transmission Date: 20250408
  Serious: No
  Sender: PFIZER
  Company Number: US-PFIZER INC-PV202400159338

PATIENT
  Age: 44 Year
  Sex: Female
  Weight: 73.3 kg

DRUGS (2)
  1. TIVDAK [Suspect]
     Active Substance: TISOTUMAB VEDOTIN-TFTV
     Indication: Squamous cell carcinoma of the cervix
     Dosage: 150 MG, EVERY 3 WEEKS
     Route: 042
  2. TIVDAK [Suspect]
     Active Substance: TISOTUMAB VEDOTIN-TFTV
     Dosage: 150 MG, EVERY 3 WEEKS/150 MG (VIA IV) EVERY 21 DAYS
     Route: 042
     Dates: start: 20241206, end: 20250211

REACTIONS (2)
  - Off label use [Unknown]
  - Weight increased [Not Recovered/Not Resolved]
